FAERS Safety Report 19634630 (Version 1)
Quarter: 2021Q3

REPORT INFORMATION
  Report Type: Spontaneous
  Country: US (occurrence: US)
  Receive Date: 20210730
  Receipt Date: 20210730
  Transmission Date: 20211014
  Serious: Yes (Death)
  Sender: FDA-Public Use
  Company Number: None

PATIENT
  Age: 45 Year
  Sex: Female

DRUGS (12)
  1. TUMS [Concomitant]
     Active Substance: CALCIUM CARBONATE
  2. VITAMIN D [Concomitant]
     Active Substance: VITAMIN D NOS
  3. MAGNESIUM [Concomitant]
     Active Substance: MAGNESIUM
  4. KEPPRA [Concomitant]
     Active Substance: LEVETIRACETAM
  5. MIRALAX [Concomitant]
     Active Substance: POLYETHYLENE GLYCOL 3350
  6. LEVEMIR [Concomitant]
     Active Substance: INSULIN DETEMIR
  7. REGLAM [Concomitant]
  8. ZOFRAN [Concomitant]
     Active Substance: ONDANSETRON HYDROCHLORIDE
  9. MULTIPLE VITAMIN [Concomitant]
     Active Substance: VITAMINS
  10. ALLEGRA [Concomitant]
     Active Substance: FEXOFENADINE HYDROCHLORIDE
  11. CAPECITABINE. [Suspect]
     Active Substance: CAPECITABINE
     Indication: BREAST CANCER FEMALE
     Route: 048
     Dates: start: 20210119, end: 20210716
  12. HUMALOG [Concomitant]
     Active Substance: INSULIN LISPRO

REACTIONS (1)
  - Death [None]

NARRATIVE: CASE EVENT DATE: 20210716
